FAERS Safety Report 19576915 (Version 2)
Quarter: 2021Q3

REPORT INFORMATION
  Report Type: Spontaneous
  Country: US (occurrence: US)
  Receive Date: 20210719
  Receipt Date: 20210907
  Transmission Date: 20211014
  Serious: No
  Sender: FDA-Public Use
  Company Number: US-ASTRAZENECA-2021A581930

PATIENT
  Age: 89 Year
  Sex: Male
  Weight: 106.6 kg

DRUGS (2)
  1. BYDUREON BCISE [Suspect]
     Active Substance: EXENATIDE
     Indication: TYPE 2 DIABETES MELLITUS
     Route: 058
     Dates: start: 20210524
  2. BYDUREON [Suspect]
     Active Substance: EXENATIDE
     Route: 058
     Dates: end: 20210517

REACTIONS (8)
  - Incorrect dose administered by device [Unknown]
  - Peripheral swelling [Unknown]
  - Device malfunction [Unknown]
  - Body height decreased [Unknown]
  - Skin lesion [Unknown]
  - Wrong technique in device usage process [Unknown]
  - Limb discomfort [Unknown]
  - Varicose vein [Unknown]

NARRATIVE: CASE EVENT DATE: 2021
